FAERS Safety Report 11262760 (Version 1)
Quarter: 2015Q3

REPORT INFORMATION
  Report Type: Spontaneous
  Country: US (occurrence: US)
  Receive Date: 20150710
  Receipt Date: 20150710
  Transmission Date: 20151125
  Serious: No
  Sender: FDA-Public Use
  Company Number: US-PURDUE-USA-2015-0124420

PATIENT
  Age: 45 Year
  Sex: Female

DRUGS (2)
  1. BUTRANS [Suspect]
     Active Substance: BUPRENORPHINE
     Indication: INTERVERTEBRAL DISC PROTRUSION
     Dosage: 7.5 MCG/HR, WEEKLY
     Route: 062
     Dates: start: 201505, end: 20150619
  2. BUTRANS [Suspect]
     Active Substance: BUPRENORPHINE
     Indication: ROTATOR CUFF SYNDROME
     Dosage: 5 MCG/HR, WEEKLY
     Route: 062
     Dates: start: 201504, end: 201505

REACTIONS (9)
  - Night sweats [Unknown]
  - Sleep disorder [Unknown]
  - Constipation [Recovering/Resolving]
  - Influenza like illness [Unknown]
  - Nausea [Recovered/Resolved]
  - Headache [Recovered/Resolved]
  - Drug withdrawal syndrome [Unknown]
  - Fatigue [Recovering/Resolving]
  - Arthralgia [Unknown]

NARRATIVE: CASE EVENT DATE: 20150619
